FAERS Safety Report 8574865-6 (Version None)
Quarter: 2012Q3

REPORT INFORMATION
  Report Type: 
  Country: None (occurrence: None)
  Receive Date: 20120807
  Receipt Date: 20120726
  Transmission Date: 20120928
  Serious: Yes (Hospitalization, Other)
  Sender: FDA-Public Use
  Company Number: US-BAYER-2011-080215

PATIENT
  Age: 44 Year
  Sex: Female

DRUGS (10)
  1. DROSPIRENONE AND ETHINYL ESTRADIOL [Suspect]
     Dosage: UNK
     Dates: start: 20040101
  2. MORPHINE SULFATE [Concomitant]
  3. YASMIN [Suspect]
     Dosage: UNK
     Dates: start: 20040101
  4. ZOLOFT [Concomitant]
     Dosage: 150 MG, DAILY
     Route: 048
     Dates: start: 20030512, end: 20060816
  5. ZITHROMAX [Concomitant]
     Dosage: 250 MG, UNK
     Dates: start: 20050225
  6. NITROGLYCERIN [Concomitant]
  7. LOPRESSOR [Concomitant]
  8. ASPIRIN [Concomitant]
  9. YAZ [Suspect]
     Dosage: UNK
     Dates: start: 20040101
  10. XANAX [Concomitant]
     Indication: ANXIETY
     Dosage: 0.25 MG, UNK

REACTIONS (6)
  - DEEP VEIN THROMBOSIS [None]
  - INJURY [None]
  - ANXIETY [None]
  - EMOTIONAL DISTRESS [None]
  - PULMONARY EMBOLISM [None]
  - PAIN [None]
